FAERS Safety Report 8856625 (Version 2)
Quarter: 2012Q4

REPORT INFORMATION
  Report Type: 
  Country: US (occurrence: None)
  Receive Date: 20121024
  Receipt Date: 20121127
  Transmission Date: 20130627
  Serious: Yes (Hospitalization)
  Sender: FDA-Public Use
  Company Number: None

PATIENT
  Age: 34 Year
  Sex: Female

DRUGS (5)
  1. STEROID [Suspect]
  2. DEPO-MEDROL [Suspect]
     Dates: start: 20120402
  3. DEPO-MEDROL [Suspect]
     Dates: start: 20120625
  4. DEPO-MEDROL [Suspect]
     Dates: start: 20120723
  5. TRIAMCINOLONE [Suspect]
     Route: 008
     Dates: start: 20120720

REACTIONS (13)
  - Nausea [None]
  - Vomiting [None]
  - Influenza like illness [None]
  - Pyrexia [None]
  - Confusional state [None]
  - Dysuria [None]
  - Mental status changes [None]
  - Intra-abdominal pressure increased [None]
  - Injection site pain [None]
  - Malaise [None]
  - Chest pain [None]
  - Blood pressure increased [None]
  - Heart rate increased [None]
